FAERS Safety Report 25115963 (Version 1)
Quarter: 2025Q1

REPORT INFORMATION
  Report Type: Spontaneous
  Country: US (occurrence: US)
  Receive Date: 20250325
  Receipt Date: 20250325
  Transmission Date: 20250408
  Serious: Yes (Hospitalization)
  Sender: ADVANZ PHARMA
  Company Number: US-ADVANZ PHARMA-202503002057

PATIENT

DRUGS (12)
  1. HYDROXYCHLOROQUINE [Suspect]
     Active Substance: HYDROXYCHLOROQUINE
     Indication: Immune system disorder
     Dates: start: 2014
  2. XELJANZ XR [Suspect]
     Active Substance: TOFACITINIB CITRATE
     Indication: Rheumatoid arthritis
     Route: 048
     Dates: start: 2017
  3. XELJANZ XR [Suspect]
     Active Substance: TOFACITINIB CITRATE
     Route: 048
  4. XELJANZ XR [Suspect]
     Active Substance: TOFACITINIB CITRATE
  5. DOXAZOSIN MESYLATE [Concomitant]
     Active Substance: DOXAZOSIN MESYLATE
  6. METOPROLOL [Concomitant]
     Active Substance: METOPROLOL
  7. DILTIAZEM [Concomitant]
     Active Substance: DILTIAZEM
  8. ACETAMINOPHEN [Concomitant]
     Active Substance: ACETAMINOPHEN
  9. CALCIUM [Concomitant]
     Active Substance: CALCIUM
  10. CHOLECALCIFEROL [Concomitant]
     Active Substance: CHOLECALCIFEROL
  11. OMEPRAZOLE [Concomitant]
     Active Substance: OMEPRAZOLE
  12. TOFACITINIB [Concomitant]
     Active Substance: TOFACITINIB

REACTIONS (2)
  - Urinary tract infection [Recovered/Resolved]
  - Weight increased [Recovered/Resolved]

NARRATIVE: CASE EVENT DATE: 20190605
